FAERS Safety Report 8366779-1 (Version None)
Quarter: 2012Q2

REPORT INFORMATION
  Report Type: 
  Country: None (occurrence: None)
  Receive Date: 20120516
  Receipt Date: 20120516
  Transmission Date: 20120825
  Serious: Yes (Other)
  Sender: FDA-Public Use
  Company Number: None

PATIENT
  Age: 60 Year
  Sex: Female
  Weight: 84.9 kg

DRUGS (1)
  1. IOHEXOL [Suspect]
     Indication: COMPUTERISED TOMOGRAM
     Dosage: 333 ML ORALLY Q. 10 MIN X3 DOSES
     Route: 048
     Dates: start: 20120305

REACTIONS (3)
  - PRURITUS [None]
  - CONTRAST MEDIA REACTION [None]
  - URTICARIA [None]
